FAERS Safety Report 6709262-9 (Version None)
Quarter: 2010Q2

REPORT INFORMATION
  Report Type: 
  Country: None (occurrence: None)
  Receive Date: 20100423
  Receipt Date: 20091007
  Transmission Date: 20101027
  Serious: Yes (Hospitalization)
  Sender: FDA-Public Use
  Company Number: WAES 0910USA00861

PATIENT
  Age: 5 Year
  Sex: Male
  Weight: 35.8342 kg

DRUGS (2)
  1. SINGULAIR [Suspect]
     Indication: ASTHMA
     Dosage: 5 MG/PO
  2. ALBUTEROL [Concomitant]

REACTIONS (2)
  - OVERDOSE [None]
  - PANCREATITIS [None]
